FAERS Safety Report 4984096-4 (Version None)
Quarter: 2006Q1

REPORT INFORMATION
  Report Type: 
  Country: None (occurrence: None)
  Receive Date: 20060306
  Receipt Date: 20051111
  Transmission Date: 20060701
  Serious: No
  Sender: FDA-Public Use
  Company Number: 33075

PATIENT
  Sex: Female

DRUGS (1)
  1. NEVANAC [Suspect]
     Indication: IRITIS

REACTIONS (2)
  - OCULAR HYPERAEMIA [None]
  - OCULAR ICTERUS [None]
